FAERS Safety Report 9849294 (Version 1)
Quarter: 2014Q1

REPORT INFORMATION
  Report Type: Spontaneous
  Country: US (occurrence: None)
  Receive Date: 20140124
  Receipt Date: 20140124
  Transmission Date: 20141002
  Serious: Yes (Hospitalization)
  Sender: FDA-Public Use
  Company Number: None

PATIENT
  Age: 29 Year
  Sex: Female
  Weight: 88.45 kg

DRUGS (17)
  1. MIRENA [Suspect]
     Indication: CONTRACEPTION
     Dosage: INSERTED INTO UTERUS
     Dates: start: 201305, end: 201311
  2. EFFEXOR ER [Concomitant]
  3. ACETAZOLIMIDE [Concomitant]
  4. CARVEDILOL [Concomitant]
  5. HCTZ [Concomitant]
  6. PANTOPRAZOLE [Concomitant]
  7. MONTELUKAST [Concomitant]
  8. XYREM [Concomitant]
  9. FLOVENT [Concomitant]
  10. ALBUTEROL [Concomitant]
  11. LIQUID B-COMPLEX [Concomitant]
  12. COQ10 [Concomitant]
  13. MAGNESIUM [Concomitant]
  14. POTASSIUM [Concomitant]
  15. VITAMIN D [Concomitant]
  16. LISINOPRIL [Concomitant]
  17. NIFEDIPINE [Concomitant]

REACTIONS (4)
  - Vertigo [None]
  - Vision blurred [None]
  - Papilloedema [None]
  - Nuclear magnetic resonance imaging brain abnormal [None]
